FAERS Safety Report 6007298-7 (Version None)
Quarter: 2008Q4

REPORT INFORMATION
  Report Type: 
  Country: None (occurrence: None)
  Receive Date: 20081217
  Receipt Date: 20080229
  Transmission Date: 20090506
  Serious: No
  Sender: FDA-Public Use
  Company Number: US-ASTRAZENECA-2008UW04085

PATIENT
  Sex: Male

DRUGS (4)
  1. CRESTOR [Suspect]
     Route: 048
     Dates: start: 20041101, end: 20050401
  2. LIPITOR [Suspect]
     Route: 048
     Dates: start: 20010101, end: 20041101
  3. NIACIN [Suspect]
     Dates: start: 20050401
  4. ZETIA [Suspect]
     Dates: start: 20060701

REACTIONS (5)
  - DRUG INEFFECTIVE [None]
  - DRUG INTOLERANCE [None]
  - EMPHYSEMA [None]
  - MYALGIA [None]
  - WEIGHT DECREASED [None]
